FAERS Safety Report 6499843-2 (Version None)
Quarter: 2009Q4

REPORT INFORMATION
  Report Type: 
  Country: None (occurrence: None)
  Receive Date: 20091214
  Receipt Date: 20091201
  Transmission Date: 20100525
  Serious: Yes (Death, Hospitalization)
  Sender: FDA-Public Use
  Company Number: 058

PATIENT
  Age: 38 Year
  Sex: Male

DRUGS (4)
  1. FAZACLO 100 MG ODT AZUR PHARMA (FORMERLY ALAMO PHARMACEUTICALS) [Suspect]
     Indication: SCHIZOPHRENIA, PARANOID TYPE
     Dosage: 500 MG PO DAILY
     Route: 048
     Dates: start: 20051018, end: 20060630
  2. NIACIN [Concomitant]
  3. ASPIRIN [Concomitant]
  4. DILANTIN [Concomitant]

REACTIONS (3)
  - PNEUMONIA [None]
  - PULMONARY EMBOLISM [None]
  - URINARY TRACT INFECTION [None]
